FAERS Safety Report 16254164 (Version 1)
Quarter: 2019Q2

REPORT INFORMATION
  Report Type: Report from Study
  Country: BR (occurrence: BR)
  Receive Date: 20190430
  Receipt Date: 20190430
  Transmission Date: 20190711
  Serious: Yes (Death, Other)
  Sender: FDA-Public Use
  Company Number: PHHY2018BR195270

PATIENT
  Age: 69 Year
  Sex: Male
  Weight: 59 kg

DRUGS (1)
  1. VOTRIENT [Suspect]
     Active Substance: PAZOPANIB HYDROCHLORIDE
     Indication: METASTATIC RENAL CELL CARCINOMA
     Dosage: 800 MG, QD
     Route: 048
     Dates: start: 20181211, end: 20190416

REACTIONS (4)
  - Weight increased [Not Recovered/Not Resolved]
  - Neoplasm malignant [Unknown]
  - Second primary malignancy [Unknown]
  - Malaise [Fatal]

NARRATIVE: CASE EVENT DATE: 20190417
